FAERS Safety Report 18587203 (Version 1)
Quarter: 2020Q4

REPORT INFORMATION
  Report Type: Spontaneous
  Country: ES (occurrence: ES)
  Receive Date: 20201207
  Receipt Date: 20201207
  Transmission Date: 20210114
  Serious: Yes (Life-Threatening)
  Sender: FDA-Public Use
  Company Number: ES-TEVA-2020-ES-1854981

PATIENT
  Age: 72 Year
  Sex: Female

DRUGS (2)
  1. MIRTAZAPINA (2704A) [Suspect]
     Active Substance: MIRTAZAPINE
     Indication: DEPRESSION
     Dosage: 15 MILLIGRAM DAILY; 15 MG / DAY
     Route: 048
     Dates: start: 20200902, end: 20201016
  2. FONDAPARINUX (2866A) [Suspect]
     Active Substance: FONDAPARINUX
     Indication: THROMBOSIS PROPHYLAXIS
     Dosage: 2.5 MILLIGRAM DAILY; 2.5 MG / DAY
     Route: 058
     Dates: start: 20200904, end: 20201011

REACTIONS (1)
  - Thrombocytopenia [Recovered/Resolved]

NARRATIVE: CASE EVENT DATE: 20201011
